FAERS Safety Report 5004476-0 (Version None)
Quarter: 2006Q2

REPORT INFORMATION
  Report Type: 
  Country: None (occurrence: None)
  Receive Date: 20060517
  Receipt Date: 20030120
  Transmission Date: 20061013
  Serious: Yes (Hospitalization)
  Sender: FDA-Public Use
  Company Number: US-ROCHE-329972

PATIENT
  Age: 65 Year
  Sex: Female
  Weight: 67.1 kg

DRUGS (6)
  1. KLONOPIN [Suspect]
     Route: 048
     Dates: start: 19940615
  2. KLONOPIN [Suspect]
     Route: 048
     Dates: start: 19610615
  3. ASPIRIN [Concomitant]
     Route: 048
  4. TUMS [Concomitant]
     Route: 048
  5. SYNVISC [Concomitant]
     Indication: DRUG USE FOR UNKNOWN INDICATION
     Route: 065
     Dates: start: 20060515
  6. ETHYL CHLORIDE [Concomitant]
     Route: 061

REACTIONS (17)
  - ABDOMINAL DISTENSION [None]
  - ABNORMAL DREAMS [None]
  - ANXIETY [None]
  - BACK PAIN [None]
  - BLOOD PRESSURE FLUCTUATION [None]
  - BREAST CANCER [None]
  - DEPRESSION [None]
  - DIZZINESS [None]
  - HEART RATE INCREASED [None]
  - HOT FLUSH [None]
  - INCREASED BRONCHIAL SECRETION [None]
  - INFLUENZA LIKE ILLNESS [None]
  - MEMORY IMPAIRMENT [None]
  - MUSCULAR WEAKNESS [None]
  - RESTLESSNESS [None]
  - SHOULDER PAIN [None]
  - VOMITING [None]
